FAERS Safety Report 11276935 (Version 3)
Quarter: 2015Q3

REPORT INFORMATION
  Report Type: Spontaneous
  Country: US (occurrence: US)
  Receive Date: 20150716
  Receipt Date: 20150723
  Transmission Date: 20151125
  Serious: Yes (Other)
  Sender: FDA-Public Use
  Company Number: US-BAYER-2015-374545

PATIENT
  Sex: Female

DRUGS (1)
  1. MIRENA [Suspect]
     Active Substance: LEVONORGESTREL
     Indication: CONTRACEPTION
     Dosage: 20 MCG/24HR, CONT
     Route: 015
     Dates: start: 20131024, end: 201506

REACTIONS (6)
  - Blighted ovum [Recovered/Resolved]
  - Drug ineffective [None]
  - Abortion spontaneous [Recovered/Resolved]
  - Device dislocation [Recovered/Resolved]
  - Device physical property issue [None]
  - Pregnancy with contraceptive device [Recovered/Resolved]
